FAERS Safety Report 11614850 (Version 1)
Quarter: 2015Q4

REPORT INFORMATION
  Report Type: Spontaneous
  Country: US (occurrence: US)
  Receive Date: 20151009
  Receipt Date: 20151009
  Transmission Date: 20160304
  Serious: Yes (Other)
  Sender: FDA-Public Use
  Company Number: US-ASTRAZENECA-2015SE95828

PATIENT
  Age: 50 Year
  Sex: Male
  Weight: 81.6 kg

DRUGS (16)
  1. VITAMIN B12 [Concomitant]
     Active Substance: CYANOCOBALAMIN
     Indication: PLATELET COUNT DECREASED
     Dosage: UNKNOWN
     Route: 048
     Dates: start: 2005
  2. VITAMIN E [Concomitant]
     Active Substance: .ALPHA.-TOCOPHEROL
     Indication: HYPOVITAMINOSIS
     Route: 048
     Dates: start: 2005
  3. TRAZODONE [Concomitant]
     Active Substance: TRAZODONE HYDROCHLORIDE
     Indication: DEPRESSION
     Route: 048
     Dates: start: 2005
  4. VITAMIN D3 [Concomitant]
     Active Substance: CHOLECALCIFEROL
     Indication: HYPOVITAMINOSIS
     Route: 048
     Dates: start: 2005
  5. VITAMIN D3 [Concomitant]
     Active Substance: CHOLECALCIFEROL
     Indication: PLATELET COUNT DECREASED
     Route: 048
     Dates: start: 2005
  6. VITAMIN E [Concomitant]
     Active Substance: .ALPHA.-TOCOPHEROL
     Indication: PLATELET COUNT DECREASED
     Route: 048
     Dates: start: 2005
  7. VITAMIN B12 [Concomitant]
     Active Substance: CYANOCOBALAMIN
     Indication: HYPOVITAMINOSIS
     Dosage: UNKNOWN
     Route: 048
     Dates: start: 2005
  8. AMBIEN [Concomitant]
     Active Substance: ZOLPIDEM TARTRATE
     Indication: SLEEP DISORDER
     Dosage: UNKNOWN
     Route: 048
  9. SEROQUEL [Suspect]
     Active Substance: QUETIAPINE FUMARATE
     Indication: INSOMNIA
     Route: 048
     Dates: start: 2013
  10. SEROQUEL [Suspect]
     Active Substance: QUETIAPINE FUMARATE
     Indication: INSOMNIA
     Route: 048
     Dates: start: 20150422, end: 20150527
  11. SEROQUEL [Suspect]
     Active Substance: QUETIAPINE FUMARATE
     Indication: INSOMNIA
     Route: 048
     Dates: start: 20150708, end: 20150917
  12. SEROQUEL [Suspect]
     Active Substance: QUETIAPINE FUMARATE
     Indication: INSOMNIA
     Dosage: WASN NOT MORE THAN 100 MG AT NIGHT
     Route: 048
     Dates: start: 2006
  13. ALLOPURINOL. [Concomitant]
     Active Substance: ALLOPURINOL
     Indication: GOUT
     Route: 048
     Dates: start: 2005
  14. ENBRIL [Concomitant]
     Indication: PSORIATIC ARTHROPATHY
     Dosage: 50 MG/ML, ONCE A WEEK
     Route: 058
     Dates: start: 2012
  15. COLCRIS [Concomitant]
     Indication: GOUT
     Route: 048
     Dates: start: 2005
  16. TRAZODONE [Concomitant]
     Active Substance: TRAZODONE HYDROCHLORIDE
     Indication: INSOMNIA
     Route: 048
     Dates: start: 2005

REACTIONS (15)
  - Hypovitaminosis [Unknown]
  - Insomnia [Unknown]
  - Hepatic cirrhosis [Unknown]
  - Feeling abnormal [Unknown]
  - Platelet count decreased [Unknown]
  - Abdominal pain [Unknown]
  - Psoriatic arthropathy [Unknown]
  - Delusional disorder, unspecified type [Unknown]
  - General physical health deterioration [Unknown]
  - Weight decreased [Unknown]
  - Cirrhosis alcoholic [Unknown]
  - Constipation [Unknown]
  - Product use issue [Unknown]
  - Bipolar II disorder [Unknown]
  - Drug dose omission [Unknown]

NARRATIVE: CASE EVENT DATE: 2006
